FAERS Safety Report 5672240-5 (Version None)
Quarter: 2008Q2

REPORT INFORMATION
  Report Type: 
  Country: None (occurrence: None)
  Receive Date: 20080219
  Receipt Date: 20071218
  Transmission Date: 20081010
  Serious: No
  Sender: FDA-Public Use
  Company Number: TPA2007A02525

PATIENT
  Age: 54 Year
  Sex: Male
  Weight: 88.4514 kg

DRUGS (5)
  1. ROZEREM [Suspect]
     Indication: MIDDLE INSOMNIA
     Dosage: 8 MG, HS, PER ORAL
     Route: 048
     Dates: start: 20071216, end: 20071218
  2. ZYPREXA [Concomitant]
  3. TEMAZEPAM [Concomitant]
  4. AMBIEN [Concomitant]
  5. VALIUM [Concomitant]

REACTIONS (2)
  - HEADACHE [None]
  - MIDDLE INSOMNIA [None]
